FAERS Safety Report 10787073 (Version 1)
Quarter: 2015Q1

REPORT INFORMATION
  Report Type: Spontaneous
  Country: US (occurrence: US)
  Receive Date: 20150211
  Receipt Date: 20150211
  Transmission Date: 20150721
  Serious: No
  Sender: FDA-Public Use
  Company Number: US-GLAXOSMITHKLINE-US2015GSK018198

PATIENT
  Sex: Male

DRUGS (1)
  1. VERAMYST [Suspect]
     Active Substance: FLUTICASONE FUROATE
     Indication: SINUS CONGESTION
     Dosage: 2 PUFF(S), QD
     Route: 045

REACTIONS (2)
  - Drug administration error [Unknown]
  - Extra dose administered [Unknown]
